FAERS Safety Report 14385264 (Version 2)
Quarter: 2019Q1

REPORT INFORMATION
  Report Type: Spontaneous
  Country: US (occurrence: US)
  Receive Date: 20180115
  Receipt Date: 20190104
  Transmission Date: 20190417
  Serious: Yes (Other)
  Sender: FDA-Public Use
  Company Number: US-SA-2016SA223287

PATIENT
  Age: 57 Year
  Sex: Female
  Weight: 73 kg

DRUGS (18)
  1. AMLODIPINE BESILATE [Concomitant]
     Active Substance: AMLODIPINE BESYLATE
     Dosage: UNK UNK,UNK
     Route: 065
     Dates: start: 2002
  2. METFORMIN HYDROCHLORIDE;SITAGLIPTIN PHOSPHATE MONOHYDRATE [Concomitant]
     Active Substance: METFORMIN HYDROCHLORIDE\SITAGLIPTIN PHOSPHATE
     Dosage: UNK UNK,UNK
     Route: 065
     Dates: start: 2016
  3. AVAPRO [Concomitant]
     Active Substance: IRBESARTAN
     Dosage: 1 DF, QD
     Route: 048
  4. PREVNAR [Concomitant]
     Active Substance: PNEUMOCOCCAL 7-VALENT CONJUGATE VACCINE (DIPHTHERIA CRM197 PROTEIN)
     Route: 065
  5. MECLIZINE HCL [Concomitant]
     Active Substance: MECLIZINE HYDROCHLORIDE
     Dosage: UNK, UNK
     Route: 065
  6. ZOFRAN [Concomitant]
     Active Substance: ONDANSETRON HYDROCHLORIDE
     Dosage: UNK, UNK
     Route: 065
  7. TAXOTERE [Suspect]
     Active Substance: DOCETAXEL
     Dosage: 145 MG,Q3W
     Route: 042
     Dates: start: 20100203, end: 20100203
  8. PREMPRO [Concomitant]
     Active Substance: ESTROGENS, CONJUGATED\MEDROXYPROGESTERONE ACETATE
     Dosage: UNK UNK,UNK
     Route: 065
     Dates: start: 2004, end: 2008
  9. KETOCONAZOLE. [Concomitant]
     Active Substance: KETOCONAZOLE
     Dosage: UNK UNK, BID
     Route: 065
  10. LEVOTHYROXINE. [Concomitant]
     Active Substance: LEVOTHYROXINE
     Dosage: UNK UNK,UNK
     Route: 065
     Dates: start: 2002
  11. CARBOPLATIN. [Concomitant]
     Active Substance: CARBOPLATIN
     Route: 065
  12. ACETYLSALICYLIC ACID [Concomitant]
     Active Substance: ASPIRIN
     Route: 065
  13. TELMISARTAN. [Concomitant]
     Active Substance: TELMISARTAN
     Dosage: UNK UNK,UNK
     Route: 065
     Dates: start: 2016
  14. TAXOTERE [Suspect]
     Active Substance: DOCETAXEL
     Indication: BREAST CANCER METASTATIC
     Dosage: 145 MG,Q3W
     Route: 042
     Dates: start: 20091022, end: 20091022
  15. SIMVASTATIN. [Concomitant]
     Active Substance: SIMVASTATIN
     Dosage: UNK UNK,UNK
     Route: 065
     Dates: start: 2002
  16. BAYASPIRIN [Concomitant]
     Active Substance: ASPIRIN
     Dosage: UNK UNK,UNK
     Route: 065
     Dates: start: 2002
  17. TRASTUZUMAB. [Concomitant]
     Active Substance: TRASTUZUMAB
     Route: 065
  18. AMARYL [Concomitant]
     Active Substance: GLIMEPIRIDE
     Dosage: UNK, UNK
     Route: 065

REACTIONS (4)
  - Alopecia [Not Recovered/Not Resolved]
  - Psychological trauma [Unknown]
  - Anxiety [Unknown]
  - Emotional distress [Unknown]

NARRATIVE: CASE EVENT DATE: 201008
